FAERS Safety Report 8930083 (Version 1)
Quarter: 2012Q4

REPORT INFORMATION
  Report Type: 
  Country: RU (occurrence: RU)
  Receive Date: 20121128
  Receipt Date: 20121128
  Transmission Date: 20130627
  Serious: Yes (Other)
  Sender: FDA-Public Use
  Company Number: RU-ABBOTT-12P-251-1009657-00

PATIENT
  Age: 0 Year
  Sex: Female

DRUGS (11)
  1. SYNAGIS [Suspect]
     Indication: IMMUNISATION
     Dosage: single dose
     Route: 030
     Dates: start: 20121009
  2. ZYVOX [Suspect]
     Indication: PNEUMONIA
     Dosage: L/V
     Dates: start: 201210
  3. ZYVOX [Suspect]
     Indication: ENTEROCOLITIS
  4. FORTUM [Concomitant]
     Indication: PNEUMONIA
     Dosage: l/v
     Dates: start: 201210
  5. FORTUM [Concomitant]
     Indication: ENTEROCOLITIS
  6. CAFFEINE [Concomitant]
     Indication: APNOEA
     Dosage: i/v
     Dates: start: 201210
  7. EPOCRIN [Concomitant]
     Indication: ANAEMIA
     Route: 058
     Dates: start: 201210
  8. VITAMIN D [Concomitant]
     Indication: PROPHYLAXIS
     Dates: start: 201210
  9. VITAMIN D [Concomitant]
     Indication: RICKETS
  10. L-THYROXINE [Concomitant]
     Indication: HYPOTHYROIDISM
     Dates: start: 201210
  11. BIFIFORM [Concomitant]
     Indication: PRODUCT USED FOR UNKNOWN INDICATION
     Dosage: per os
     Dates: start: 201210

REACTIONS (3)
  - Hepatic enzyme increased [Recovering/Resolving]
  - Blood bilirubin increased [Recovering/Resolving]
  - Cholestasis [Recovering/Resolving]
